FAERS Safety Report 9309917 (Version 1)
Quarter: 2013Q2

REPORT INFORMATION
  Report Type: Spontaneous
  Country: JP (occurrence: JP)
  Receive Date: 20130526
  Receipt Date: 20130526
  Transmission Date: 20140414
  Serious: Yes (Other)
  Sender: FDA-Public Use
  Company Number: JP-BRISTOL-MYERS SQUIBB COMPANY-15443237

PATIENT
  Sex: Male

DRUGS (1)
  1. ABILIFY TABS [Suspect]
     Dosage: ABILIFY TABLET 6MG
     Route: 048

REACTIONS (2)
  - Hepatic steatosis [Unknown]
  - Aspartate aminotransferase increased [Unknown]
